FAERS Safety Report 14123771 (Version 1)
Quarter: 2017Q4

REPORT INFORMATION
  Report Type: Spontaneous
  Country: US (occurrence: US)
  Receive Date: 20171014
  Receipt Date: 20171014
  Transmission Date: 20180321
  Serious: Yes (Other)
  Sender: FDA-Public Use
  Company Number: None

PATIENT
  Age: 9 Year
  Sex: Female
  Weight: 27.45 kg

DRUGS (3)
  1. FLINTSTONES CHEWABLE VITAMIN [Concomitant]
  2. MARIJUANA EXTRACT [Suspect]
     Active Substance: CANNABIS SATIVA SUBSP. INDICA TOP
  3. ZAZA CHEWY FILLED CANDY [Suspect]
     Active Substance: UNSPECIFIED INGREDIENT
     Indication: PRODUCT USED FOR UNKNOWN INDICATION

REACTIONS (3)
  - Breath odour [None]
  - Dizziness [None]
  - Suspected product tampering [None]

NARRATIVE: CASE EVENT DATE: 20171013
